FAERS Safety Report 6026581-2 (Version None)
Quarter: 2008Q4

REPORT INFORMATION
  Report Type: 
  Country: None (occurrence: None)
  Receive Date: 20081231
  Receipt Date: 20081216
  Transmission Date: 20090506
  Serious: Yes (Hospitalization, Disabling)
  Sender: FDA-Public Use
  Company Number: 2008S1022356

PATIENT
  Age: 48 Year
  Sex: Female

DRUGS (1)
  1. MIDODRINE HYDROCHLORIDE [Suspect]
     Indication: HYPOTENSION
     Dosage: 5 MG; DAILY 5MG; TWICE A DAY

REACTIONS (9)
  - DRY GANGRENE [None]
  - ERYTHEMA [None]
  - FOOT AMPUTATION [None]
  - ISCHAEMIA [None]
  - LEG AMPUTATION [None]
  - MIDDLE INSOMNIA [None]
  - PAIN IN EXTREMITY [None]
  - SKIN INFECTION [None]
  - SKIN ULCER [None]
